FAERS Safety Report 6545312-0 (Version None)
Quarter: 2010Q1

REPORT INFORMATION
  Report Type: 
  Country: None (occurrence: None)
  Receive Date: 20100121
  Receipt Date: 20100114
  Transmission Date: 20100710
  Serious: Yes (Hospitalization)
  Sender: FDA-Public Use
  Company Number: DE-TEVA-221130ISR

PATIENT
  Sex: Male
  Weight: 74 kg

DRUGS (3)
  1. OXALIPLATIN [Suspect]
     Indication: COLON CANCER
     Dosage: PER CYCLE
     Route: 042
     Dates: start: 20090504, end: 20090914
  2. CALCIUM FOLINATE [Concomitant]
     Indication: COLON CANCER
     Route: 042
     Dates: start: 20090504, end: 20090914
  3. FLUOROURACIL [Concomitant]
     Indication: COLON CANCER
     Route: 042
     Dates: start: 20090504, end: 20090914

REACTIONS (5)
  - DRUG HYPERSENSITIVITY [None]
  - ERYTHEMA [None]
  - HEADACHE [None]
  - HYPERTENSIVE CRISIS [None]
  - RASH [None]
